FAERS Safety Report 6980148-8 (Version None)
Quarter: 2010Q3

REPORT INFORMATION
  Report Type: 
  Country: None (occurrence: None)
  Receive Date: 20100914
  Receipt Date: 20100901
  Transmission Date: 20110219
  Serious: Yes (Hospitalization)
  Sender: FDA-Public Use
  Company Number: DE-ASTRAZENECA-2009SE01144

PATIENT
  Age: 76 Year
  Sex: Male
  Weight: 90.5 kg

DRUGS (7)
  1. METOPROLOL SUCCINATE [Suspect]
     Indication: HYPERTENSION
     Route: 048
     Dates: start: 20070701
  2. MOXONIDINE [Suspect]
     Indication: HYPERTENSION
     Route: 048
     Dates: start: 20070701
  3. LISI-PUREN [Concomitant]
     Indication: HYPERTENSION
     Route: 048
     Dates: start: 20070701
  4. AMLODIPINE [Concomitant]
     Route: 048
     Dates: start: 20070701
  5. ASPIRIN [Concomitant]
     Route: 048
     Dates: start: 20070701, end: 20081128
  6. SIMVASTATIN [Concomitant]
     Dates: start: 20070701
  7. EXFORGE [Concomitant]
     Route: 048
     Dates: start: 20070701

REACTIONS (2)
  - BRADYCARDIA [None]
  - HYPERKALAEMIA [None]
